FAERS Safety Report 7289949-2 (Version None)
Quarter: 2011Q1

REPORT INFORMATION
  Report Type: 
  Country: None (occurrence: None)
  Receive Date: 20110202
  Receipt Date: 20110119
  Transmission Date: 20110831
  Serious: Yes (Disabling)
  Sender: FDA-Public Use
  Company Number: 2011AP000089

PATIENT
  Age: 47 Year
  Sex: Female

DRUGS (13)
  1. AMLODIPINE [Concomitant]
  2. AMOXICILLIN [Concomitant]
  3. FLUOXETINE [Concomitant]
  4. LISINOPRIL [Concomitant]
  5. PREDNISOLONE [Concomitant]
  6. BENZYDAMINE (BENZYDAMINE) [Concomitant]
  7. OXTETRACYCLINE (OXTETRACYCLINE) [Concomitant]
  8. SALBUTAMOL (SALBUTAMOL) [Concomitant]
  9. CLARITHROMYCIN [Suspect]
     Indication: PRODUCT USED FOR UNKNOWN INDICATION
     Dates: start: 20110113
  10. BUDESONIDE [Concomitant]
  11. DICLOFENAC SODIUM [Concomitant]
  12. TAMSULOSIN HCL [Concomitant]
  13. CLARITHROMYCIN [Concomitant]

REACTIONS (1)
  - JOINT SWELLING [None]
